FAERS Safety Report 15616221 (Version 1)
Quarter: 2018Q4

REPORT INFORMATION
  Report Type: Spontaneous
  Country: US (occurrence: US)
  Receive Date: 20181114
  Receipt Date: 20181114
  Transmission Date: 20190205
  Serious: Yes (Other)
  Sender: FDA-Public Use
  Company Number: US-ENDO PHARMACEUTICALS INC-2018-042722

PATIENT
  Age: 62 Year
  Sex: Male

DRUGS (1)
  1. LEVETIRACETAM TABLETS 750MG [Suspect]
     Active Substance: LEVETIRACETAM
     Indication: PRODUCT USED FOR UNKNOWN INDICATION
     Dosage: 750 MG, UNKNOWN
     Route: 065

REACTIONS (1)
  - Seizure [Unknown]
